FAERS Safety Report 18043657 (Version 1)
Quarter: 2020Q3

REPORT INFORMATION
  Report Type: Spontaneous
  Country: US (occurrence: US)
  Receive Date: 20200717
  Receipt Date: 20200717
  Transmission Date: 20201103
  Serious: Yes (Other)
  Sender: FDA-Public Use
  Company Number: None

PATIENT
  Age: 86 Year
  Sex: Female
  Weight: 83 kg

DRUGS (1)
  1. ATORVASTATIN [Suspect]
     Active Substance: ATORVASTATIN
     Indication: HEPATITIS
     Route: 051
     Dates: start: 20200606, end: 20200619

REACTIONS (3)
  - Malaise [None]
  - Alanine aminotransferase increased [None]
  - Hepatitis [None]

NARRATIVE: CASE EVENT DATE: 20200618
